FAERS Safety Report 6559309-8 (Version None)
Quarter: 2010Q1

REPORT INFORMATION
  Report Type: 
  Country: None (occurrence: None)
  Receive Date: 20100129
  Receipt Date: 20100119
  Transmission Date: 20100710
  Serious: Yes (Other)
  Sender: FDA-Public Use
  Company Number: US-JNJCH-2010002705

PATIENT
  Sex: Male

DRUGS (13)
  1. ASPIRIN [Suspect]
     Indication: ACUTE CORONARY SYNDROME
     Dosage: TEXT:81 MG
     Route: 048
  2. ASPIRIN [Suspect]
     Dosage: TEXT:81 MG
     Route: 048
  3. PLACEBO [Suspect]
     Indication: ACUTE CORONARY SYNDROME
     Dosage: TEXT:1 IN 1 DAY
     Route: 048
  4. PLACEBO [Suspect]
     Dosage: TEXT:2 IN 1 DAY
     Route: 048
  5. PLACEBO [Suspect]
     Dosage: TEXT:2 IN 1 DAY
     Route: 048
  6. ANTICOAGULANTS [Suspect]
     Indication: ACUTE CORONARY SYNDROME
     Dosage: TEXT:1 IN 1 DAY (2.5MG OR 5MG DAILY)
     Route: 048
     Dates: start: 20090804, end: 20090804
  7. ANTICOAGULANTS [Suspect]
     Dosage: TEXT:2 IN 1 DAY
     Route: 048
  8. ANTICOAGULANTS [Suspect]
     Dosage: TEXT:2 IN 1 DAY
     Route: 048
  9. LOVASTATIN [Concomitant]
     Indication: DRUG USE FOR UNKNOWN INDICATION
     Dosage: TEXT:UNKNOWN
     Route: 065
  10. SYNTHROID [Concomitant]
     Indication: DRUG USE FOR UNKNOWN INDICATION
     Dosage: TEXT:UNKNOWN
     Route: 065
  11. NEBIVOLOL [Concomitant]
     Indication: DRUG USE FOR UNKNOWN INDICATION
     Dosage: TEXT:UNKNOWN
     Route: 065
  12. NIFEDIPINE [Concomitant]
     Indication: DRUG USE FOR UNKNOWN INDICATION
     Dosage: TEXT:UNKNOWN
     Route: 065
  13. LISINOPRIL [Concomitant]
     Indication: DRUG USE FOR UNKNOWN INDICATION
     Dosage: TEXT:UNKNOWN
     Route: 065

REACTIONS (1)
  - EPISTAXIS [None]
